FAERS Safety Report 25227841 (Version 1)
Quarter: 2025Q2

REPORT INFORMATION
  Report Type: Report from Study
  Country: US (occurrence: US)
  Receive Date: 20250423
  Receipt Date: 20250423
  Transmission Date: 20250717
  Serious: Yes (Other)
  Sender: ABBVIE
  Company Number: US-ABBVIE-6235188

PATIENT
  Age: 75 Year
  Sex: Female

DRUGS (1)
  1. SKYRIZI [Suspect]
     Active Substance: RISANKIZUMAB-RZAA
     Indication: Psoriasis
     Route: 058
     Dates: start: 20240304

REACTIONS (5)
  - Knee arthroplasty [Recovered/Resolved]
  - Nasopharyngitis [Recovered/Resolved]
  - Skin cancer [Recovering/Resolving]
  - COVID-19 [Recovered/Resolved]
  - Hypertension [Recovering/Resolving]
